FAERS Safety Report 7465233-9 (Version None)
Quarter: 2011Q2

REPORT INFORMATION
  Report Type: 
  Country: None (occurrence: None)
  Receive Date: 20110505
  Receipt Date: 20110505
  Transmission Date: 20111010
  Serious: Yes (Hospitalization, Disabling)
  Sender: FDA-Public Use
  Company Number: None

PATIENT
  Age: 55 Year
  Sex: Female
  Weight: 52 kg

DRUGS (3)
  1. CALCIUM CARBONATE [Concomitant]
  2. ALENDRONATE SODIUM [Suspect]
     Indication: OSTEOPENIA
     Dosage: SEVERAL YEARS (6-7?)
  3. MULTI-VITAMIN [Concomitant]

REACTIONS (3)
  - PAIN IN EXTREMITY [None]
  - STRESS FRACTURE [None]
  - FEMUR FRACTURE [None]
